FAERS Safety Report 19385502 (Version 1)
Quarter: 2021Q2

REPORT INFORMATION
  Report Type: Spontaneous
  Country: US (occurrence: US)
  Receive Date: 20210605
  Receipt Date: 20210605
  Transmission Date: 20210717
  Serious: Yes (Hospitalization)
  Sender: FDA-Public Use
  Company Number: None

PATIENT
  Age: 43 Day
  Sex: Female
  Weight: 118.8 kg

DRUGS (2)
  1. AMOXICILLIN. [Suspect]
     Active Substance: AMOXICILLIN
     Indication: CHEST PAIN
     Dosage: ?          QUANTITY:1 TABLET(S);?
     Route: 042
     Dates: end: 20210519
  2. AMOXICILLIN. [Suspect]
     Active Substance: AMOXICILLIN
     Indication: HEADACHE
     Dosage: ?          QUANTITY:1 TABLET(S);?
     Route: 042
     Dates: end: 20210519

REACTIONS (5)
  - Headache [None]
  - Vomiting [None]
  - Diarrhoea [None]
  - Chest pain [None]
  - Haemorrhage [None]

NARRATIVE: CASE EVENT DATE: 20210514
